FAERS Safety Report 19931366 (Version 1)
Quarter: 2021Q4

REPORT INFORMATION
  Report Type: Spontaneous
  Country: CA (occurrence: CA)
  Receive Date: 20211007
  Receipt Date: 20211007
  Transmission Date: 20220303
  Serious: Yes (Other)
  Sender: FDA-Public Use
  Company Number: None

PATIENT
  Sex: Female
  Weight: 44.9 kg

DRUGS (4)
  1. CITALOPRAM HYDROBROMIDE [Suspect]
     Active Substance: CITALOPRAM HYDROBROMIDE
     Indication: Anxiety
     Dosage: 20 MG, QD
     Route: 048
  2. CRESTOR [Concomitant]
     Active Substance: ROSUVASTATIN CALCIUM
     Indication: Product used for unknown indication
     Route: 065
  3. TRAZODONE [Concomitant]
     Active Substance: TRAZODONE HYDROCHLORIDE
     Indication: Product used for unknown indication
     Route: 065
  4. AMLODIPINE BESYLATE\PERINDOPRIL ARGININE [Concomitant]
     Active Substance: AMLODIPINE BESYLATE\PERINDOPRIL ARGININE
     Indication: Product used for unknown indication
     Route: 065

REACTIONS (11)
  - Malaise [Recovered/Resolved]
  - Burning sensation [Recovered/Resolved]
  - Glomerular filtration rate increased [Recovered/Resolved]
  - Heart rate increased [Recovered/Resolved]
  - Body temperature increased [Recovered/Resolved]
  - Flushing [Recovered/Resolved]
  - Dyspepsia [Recovered/Resolved]
  - Hypertension [Recovered/Resolved]
  - Paraesthesia [Recovered/Resolved]
  - Tachycardia [Recovered/Resolved]
  - Off label use [Unknown]
